FAERS Safety Report 6180000-4 (Version None)
Quarter: 2009Q2

REPORT INFORMATION
  Report Type: 
  Country: None (occurrence: None)
  Receive Date: 20090501
  Receipt Date: 20090415
  Transmission Date: 20091009
  Serious: Yes (Disabling)
  Sender: FDA-Public Use
  Company Number: ADE# 09-120DPR

PATIENT
  Age: 81 Year
  Sex: Female

DRUGS (7)
  1. DIGOXIN [Suspect]
     Indication: HEART RATE INCREASED
     Dosage: 8 YEARS AGO
     Dates: end: 20090415
  2. ADVAIR HFA [Concomitant]
  3. SPIRIVA [Concomitant]
  4. AMITRIPTYLINE HCL [Concomitant]
  5. RANITIDINE [Concomitant]
  6. UNSPECIFIED VITAMINS [Concomitant]
  7. CALCIUM [Concomitant]

REACTIONS (11)
  - ANOREXIA [None]
  - ASTHENIA [None]
  - CONSTIPATION [None]
  - HERPES ZOSTER [None]
  - HYPERSOMNIA [None]
  - HYPOAESTHESIA [None]
  - LETHARGY [None]
  - MALAISE [None]
  - MONOPLEGIA [None]
  - PAIN IN EXTREMITY [None]
  - WEIGHT DECREASED [None]
